FAERS Safety Report 6328427-1 (Version None)
Quarter: 2009Q3

REPORT INFORMATION
  Report Type: 
  Country: None (occurrence: None)
  Receive Date: 20090825
  Receipt Date: 20090710
  Transmission Date: 20100115
  Serious: No
  Sender: FDA-Public Use
  Company Number: US-ABBOTT-09P-163-0584988-00

PATIENT
  Sex: Female
  Weight: 73.094 kg

DRUGS (4)
  1. SYNTHROID [Suspect]
     Indication: HYPOTHYROIDISM
     Dates: start: 20090201, end: 20090401
  2. SYNTHROID [Suspect]
     Dates: start: 20090401, end: 20090601
  3. SYNTHROID [Suspect]
     Route: 048
     Dates: start: 20090601
  4. LEXAPRO [Concomitant]
     Indication: DRUG USE FOR UNKNOWN INDICATION

REACTIONS (2)
  - BLOOD THYROID STIMULATING HORMONE INCREASED [None]
  - WEIGHT INCREASED [None]
